FAERS Safety Report 7446968-0 (Version None)
Quarter: 2011Q2

REPORT INFORMATION
  Report Type: 
  Country: None (occurrence: None)
  Receive Date: 20110429
  Receipt Date: 20101119
  Transmission Date: 20111010
  Serious: No
  Sender: FDA-Public Use
  Company Number: US-ASTRAZENECA-2010SE55366

PATIENT
  Sex: Female
  Weight: 77.1 kg

DRUGS (4)
  1. DARVOCET [Concomitant]
  2. LOMOTIL [Concomitant]
  3. NEXIUM [Suspect]
     Route: 048
  4. SYNTHROID [Concomitant]

REACTIONS (5)
  - FLATULENCE [None]
  - DRUG DOSE OMISSION [None]
  - DIARRHOEA [None]
  - ABDOMINAL PAIN UPPER [None]
  - SOMNOLENCE [None]
